FAERS Safety Report 21982745 (Version 4)
Quarter: 2023Q1

REPORT INFORMATION
  Report Type: Report from Study
  Country: IT (occurrence: IT)
  Receive Date: 20230213
  Receipt Date: 20230318
  Transmission Date: 20230418
  Serious: Yes (Hospitalization, Congenital Anomaly, Other)
  Sender: FDA-Public Use
  Company Number: IT-DSJP-DSE-2023-103215

PATIENT
  Sex: Female
  Weight: 2.2 kg

DRUGS (3)
  1. ASPIRIN [Suspect]
     Active Substance: ASPIRIN
     Indication: Foetal exposure during pregnancy
     Dosage: UNK
     Route: 064
     Dates: start: 2022
  2. OLMESARTAN [Suspect]
     Active Substance: OLMESARTAN
     Indication: Essential hypertension
     Dosage: 40 MILLIGRAM, ONCE A DAY
     Route: 064
     Dates: start: 2022
  3. NIFEDIPINE [Suspect]
     Active Substance: NIFEDIPINE
     Indication: Foetal exposure during pregnancy
     Dosage: UNK
     Route: 064

REACTIONS (16)
  - Hypocalvaria [Not Recovered/Not Resolved]
  - Renal impairment neonatal [Not Recovered/Not Resolved]
  - Oligohydramnios [Recovered/Resolved]
  - Hypertension [Not Recovered/Not Resolved]
  - Foetal exposure during pregnancy [Unknown]
  - Caesarean section [Recovered/Resolved]
  - Drug ineffective [Recovered/Resolved]
  - Maternal exposure during pregnancy [Recovered/Resolved]
  - Hypertension neonatal [Not Recovered/Not Resolved]
  - Premature baby [Unknown]
  - Low birth weight baby [Unknown]
  - Bone density decreased [Not Recovered/Not Resolved]
  - Renal tubular dysfunction [Unknown]
  - Renin increased [Unknown]
  - Muscle contracture [Unknown]
  - Blood aldosterone increased [Unknown]
